FAERS Safety Report 24750953 (Version 1)
Quarter: 2024Q4

REPORT INFORMATION
  Report Type: Spontaneous
  Country: US (occurrence: US)
  Receive Date: 20241219
  Receipt Date: 20241219
  Transmission Date: 20250115
  Serious: No
  Sender: Haleon PLC
  Company Number: US-HALEON-2215249

PATIENT

DRUGS (1)
  1. SENSODYNE PRONAMEL GENTLE WHITENING [Suspect]
     Active Substance: POTASSIUM NITRATE\SODIUM FLUORIDE
     Indication: Product used for unknown indication
     Dosage: EXPDATE:20260301

REACTIONS (2)
  - Toothache [Unknown]
  - Hyperaesthesia teeth [Unknown]
